FAERS Safety Report 17837775 (Version 1)
Quarter: 2020Q2

REPORT INFORMATION
  Report Type: Spontaneous
  Country: US (occurrence: US)
  Receive Date: 20200528
  Receipt Date: 20200528
  Transmission Date: 20200714
  Serious: Yes (Other)
  Sender: FDA-Public Use
  Company Number: US-AVELLA OF DEER VALLEY, INC. #38-2084292

PATIENT
  Sex: Male

DRUGS (2)
  1. BEVACIZUMAB 1.25 MG/0.05 ML [Suspect]
     Active Substance: BEVACIZUMAB
     Indication: NEOVASCULAR AGE-RELATED MACULAR DEGENERATION
     Route: 050
  2. 30G 1/2 INCH NEEDLE (DEVICE) [Suspect]
     Active Substance: DEVICE

REACTIONS (1)
  - Eye pain [Recovered/Resolved]
